FAERS Safety Report 14794875 (Version 5)
Quarter: 2018Q4

REPORT INFORMATION
  Report Type: Report from Study
  Country: IT (occurrence: IT)
  Receive Date: 20180423
  Receipt Date: 20181218
  Transmission Date: 20190204
  Serious: Yes (Death, Life-Threatening, Other)
  Sender: FDA-Public Use
  Company Number: IT-PFIZER INC-2018161192

PATIENT
  Sex: Female

DRUGS (3)
  1. DOXORUBICIN HCL [Suspect]
     Active Substance: DOXORUBICIN HYDROCHLORIDE
     Indication: OVARIAN CANCER
     Dosage: 40 MG/M2, EVERY 3 WEEKS (IN 100 ML SALINE SOLUTION ON DAY ONE)
     Route: 040
  2. CYCLOPHOSPHAMIDE. [Suspect]
     Active Substance: CYCLOPHOSPHAMIDE
     Indication: OVARIAN CANCER
     Dosage: 500 MG/M2, EVERY 3 WEEKS (IN 100 ML SALINE SOLUTION ON DAY ONE)
     Route: 040
  3. ETOPOSIDE. [Suspect]
     Active Substance: ETOPOSIDE
     Indication: OVARIAN CANCER
     Dosage: 100 MG/M2, EVERY 3 WEEKS (IN 100 ML SALINE SOLUTION ON DAY ONE, TWO, THREE)
     Route: 040

REACTIONS (2)
  - Bone marrow toxicity [Unknown]
  - Bone marrow failure [Fatal]
